FAERS Safety Report 7355718-8 (Version None)
Quarter: 2011Q1

REPORT INFORMATION
  Report Type: 
  Country: None (occurrence: None)
  Receive Date: 20110316
  Receipt Date: 20110218
  Transmission Date: 20110831
  Serious: No
  Sender: FDA-Public Use
  Company Number: US-B.I. PHARMACEUTICALS,INC./RIDGEFIELD-2011-BP-06116BP

PATIENT
  Age: 95 Year
  Sex: Female

DRUGS (3)
  1. BLOOD PRESSURE MEDICINE [Concomitant]
     Indication: HYPERTENSION
  2. DIGOXIN [Concomitant]
     Indication: ATRIAL FIBRILLATION
     Dates: start: 20110216
  3. PRADAXA [Suspect]
     Indication: ATRIAL FIBRILLATION
     Dosage: 300 MG
     Route: 048
     Dates: start: 20110217

REACTIONS (1)
  - DIZZINESS [None]
